FAERS Safety Report 4650939-7 (Version None)
Quarter: 2005Q2

REPORT INFORMATION
  Report Type: 
  Country: None (occurrence: None)
  Receive Date: 20050503
  Receipt Date: 20050419
  Transmission Date: 20051028
  Serious: Yes (Other)
  Sender: FDA-Public Use
  Company Number: CA-GLAXOSMITHKLINE-A0555248B

PATIENT
  Age: 88 Year
  Sex: Female

DRUGS (4)
  1. ASPIRIN [Suspect]
     Indication: DRUG USE FOR UNKNOWN INDICATION
     Route: 065
  2. ARTHROTEC [Suspect]
     Indication: DRUG USE FOR UNKNOWN INDICATION
     Route: 065
  3. COUMADIN [Suspect]
     Indication: DRUG USE FOR UNKNOWN INDICATION
     Dosage: 3.5MG PER DAY
     Route: 065
  4. ELTROXIN [Concomitant]
     Indication: DRUG USE FOR UNKNOWN INDICATION

REACTIONS (1)
  - HAEMORRHAGE [None]
